FAERS Safety Report 12210326 (Version 1)
Quarter: 2016Q1

REPORT INFORMATION
  Report Type: Spontaneous
  Country: US (occurrence: None)
  Receive Date: 20160324
  Receipt Date: 20160324
  Transmission Date: 20160526
  Serious: No
  Sender: FDA-Public Use
  Company Number: None

PATIENT
  Sex: Female

DRUGS (2)
  1. TOUJEO [Suspect]
     Active Substance: INSULIN GLARGINE
  2. INVOKANA [Suspect]
     Active Substance: CANAGLIFLOZIN

REACTIONS (6)
  - Blood glucose abnormal [None]
  - Pharyngitis streptococcal [None]
  - Drug ineffective [None]
  - Weight decreased [None]
  - Infection [None]
  - Glycosylated haemoglobin increased [None]
